FAERS Safety Report 24884086 (Version 1)
Quarter: 2025Q1

REPORT INFORMATION
  Report Type: Report from Study
  Country: US (occurrence: US)
  Receive Date: 20250124
  Receipt Date: 20250124
  Transmission Date: 20250409
  Serious: Yes (Other)
  Sender: JAZZ
  Company Number: US-JAZZ PHARMACEUTICALS-2025-US-000042

PATIENT
  Sex: Female

DRUGS (27)
  1. XYWAV [Suspect]
     Active Substance: CALCIUM OXYBATE\MAGNESIUM OXYBATE\POTASSIUM OXYBATE\SODIUM OXYBATE
     Indication: Narcolepsy
     Dosage: 2.25 GRAM, BID
     Dates: start: 20241209
  2. XYWAV [Suspect]
     Active Substance: CALCIUM OXYBATE\MAGNESIUM OXYBATE\POTASSIUM OXYBATE\SODIUM OXYBATE
     Indication: Cataplexy
  3. XYWAV [Suspect]
     Active Substance: CALCIUM OXYBATE\MAGNESIUM OXYBATE\POTASSIUM OXYBATE\SODIUM OXYBATE
     Indication: Somnolence
  4. AMITRIPTYLINE [Concomitant]
     Active Substance: AMITRIPTYLINE
  5. TOPIRAMATE [Concomitant]
     Active Substance: TOPIRAMATE
  6. BUSPIRONE [Concomitant]
     Active Substance: BUSPIRONE HYDROCHLORIDE
  7. DANTROLENE [Concomitant]
     Active Substance: DANTROLENE
  8. FENOFIBRATE [Concomitant]
     Active Substance: FENOFIBRATE
  9. FUROSEMIDE [Concomitant]
     Active Substance: FUROSEMIDE
  10. METHIMAZOLE [Concomitant]
     Active Substance: METHIMAZOLE
  11. MONTELUKAST [Concomitant]
     Active Substance: MONTELUKAST
  12. ATORVASTATIN [Concomitant]
     Active Substance: ATORVASTATIN
  13. ESOMEPRAZOLE MAGNESIUM [Concomitant]
     Active Substance: ESOMEPRAZOLE MAGNESIUM
  14. DULOXETINE [Concomitant]
     Active Substance: DULOXETINE
  15. OXYCODONE [Concomitant]
     Active Substance: OXYCODONE
  16. VITAMIN D2 [Concomitant]
     Active Substance: ERGOCALCIFEROL
  17. NEURONTIN [Concomitant]
     Active Substance: GABAPENTIN
  18. VITAMIN B12 [Concomitant]
     Active Substance: CYANOCOBALAMIN
  19. UBRELVY [Concomitant]
     Active Substance: UBROGEPANT
  20. AIMOVIG [Concomitant]
     Active Substance: ERENUMAB-AOOE
  21. METHYLPREDNISOLONE [Concomitant]
     Active Substance: METHYLPREDNISOLONE
  22. AMOXICILLIN [Concomitant]
     Active Substance: AMOXICILLIN
  23. FLUTICASONE PROPIONATE [Concomitant]
     Active Substance: FLUTICASONE PROPIONATE
  24. IBUPROFEN [Concomitant]
     Active Substance: IBUPROFEN
  25. MOUNJARO [Concomitant]
     Active Substance: TIRZEPATIDE
  26. GABAPENTIN [Concomitant]
     Active Substance: GABAPENTIN
  27. ROPINIROLE [Concomitant]
     Active Substance: ROPINIROLE

REACTIONS (2)
  - Loss of consciousness [Unknown]
  - Upper respiratory tract infection [Unknown]
